FAERS Safety Report 9640126 (Version 3)
Quarter: 2014Q1

REPORT INFORMATION
  Report Type: Spontaneous
  Country: US (occurrence: US)
  Receive Date: 20131023
  Receipt Date: 20140121
  Transmission Date: 20141002
  Serious: No
  Sender: FDA-Public Use
  Company Number: US-PFIZER INC-2013299376

PATIENT
  Sex: Male

DRUGS (7)
  1. SERTRALINE HCL [Suspect]
     Indication: DEPRESSION
     Dosage: UNK
  2. MICARDIS [Concomitant]
     Dosage: 40 MG, UNK
  3. GLIMEPIRIDE [Concomitant]
     Dosage: 2 MG, UNK
  4. LABETALOL HYDROCHLORIDE [Concomitant]
     Dosage: 300 MG, UNK
  5. HYDRALAZINE [Concomitant]
     Dosage: 100 MG, UNK
  6. SIMVASTATIN [Concomitant]
     Dosage: 40 MG, UNK
  7. PLAVIX [Concomitant]
     Dosage: 75 MG, UNK

REACTIONS (1)
  - Drug effect incomplete [Unknown]
